FAERS Safety Report 4869553-3 (Version None)
Quarter: 2005Q4

REPORT INFORMATION
  Report Type: 
  Country: None (occurrence: None)
  Receive Date: 20051227
  Receipt Date: 20051219
  Transmission Date: 20060501
  Serious: Yes (Death)
  Sender: FDA-Public Use
  Company Number: 220083

PATIENT
  Age: 83 Year
  Sex: Male

DRUGS (5)
  1. METALYSE                (TENECTEPLASE) [Suspect]
     Indication: MYOCARDIAL INFARCTION
     Dosage: INTRAVENOUS
     Route: 042
     Dates: start: 20051112, end: 20051112
  2. ASPIRINE (ASPIRIN) [Concomitant]
  3. OXYGEN (OXYGEN) [Concomitant]
  4. HEPARIN SODIUM [Concomitant]
  5. MORPHINIUM (MORPHINE HYDROCHLORIDE) [Concomitant]

REACTIONS (1)
  - INTESTINAL ISCHAEMIA [None]
